FAERS Safety Report 5340702-6 (Version None)
Quarter: 2007Q2

REPORT INFORMATION
  Report Type: 
  Country: None (occurrence: None)
  Receive Date: 20070531
  Receipt Date: 20070524
  Transmission Date: 20071010
  Serious: Yes (Death)
  Sender: FDA-Public Use
  Company Number: JP-BOEHRINGER INGELHEIM PHARMACEUTICALS, INC.-2007-BP-06398NB

PATIENT
  Sex: Female

DRUGS (4)
  1. MICARDIS [Suspect]
     Indication: HYPERTENSION
     Route: 048
     Dates: start: 20060501, end: 20070331
  2. ALFASULY (ALFACALCIDOL) [Concomitant]
     Indication: OSTEOPOROSIS
     Route: 048
     Dates: start: 20060425, end: 20070331
  3. SENNOSIDE (SENNOSIDE) [Concomitant]
     Indication: CONSTIPATION
     Route: 048
     Dates: start: 20060425, end: 20070331
  4. CETILO [Concomitant]
     Indication: CONSTIPATION
     Route: 048
     Dates: start: 20060425, end: 20070331

REACTIONS (2)
  - PRURITUS [None]
  - SUDDEN DEATH [None]
